FAERS Safety Report 12128094 (Version 2)
Quarter: 2016Q2

REPORT INFORMATION
  Report Type: Spontaneous
  Country: US (occurrence: US)
  Receive Date: 20160229
  Receipt Date: 20160409
  Transmission Date: 20160815
  Serious: Yes (Other)
  Sender: FDA-Public Use
  Company Number: US-009507513-1602USA011255

PATIENT
  Sex: Male

DRUGS (1)
  1. TEMODAR [Suspect]
     Active Substance: TEMOZOLOMIDE
     Indication: PINEAL NEOPLASM
     Dosage: UNK
     Route: 048

REACTIONS (2)
  - Metastases to meninges [Unknown]
  - Drug resistance [Unknown]
